FAERS Safety Report 13828728 (Version 1)
Quarter: 2017Q3

REPORT INFORMATION
  Report Type: Spontaneous
  Country: US (occurrence: US)
  Receive Date: 20170802
  Receipt Date: 20170802
  Transmission Date: 20171127
  Serious: Yes (Disabling, Congenital Anomaly)
  Sender: FDA-Public Use
  Company Number: None

PATIENT
  Age: 26 Year
  Sex: Female
  Weight: 84.4 kg

DRUGS (3)
  1. ASPIRIN. [Suspect]
     Active Substance: ASPIRIN
     Indication: PRE-ECLAMPSIA
     Route: 048
     Dates: start: 20170224, end: 20170802
  2. ASPIRIN. [Suspect]
     Active Substance: ASPIRIN
     Indication: PROPHYLAXIS
     Route: 048
     Dates: start: 20170224, end: 20170802
  3. PRENATAL TABLET WITH IRON [Concomitant]

REACTIONS (2)
  - Exposure during pregnancy [None]
  - Renal dysplasia [None]

NARRATIVE: CASE EVENT DATE: 20170707
